FAERS Safety Report 4782390-3 (Version None)
Quarter: 2005Q3

REPORT INFORMATION
  Report Type: 
  Country: None (occurrence: None)
  Receive Date: 20050929
  Receipt Date: 20050915
  Transmission Date: 20060218
  Serious: Yes (Hospitalization)
  Sender: FDA-Public Use
  Company Number: US-JNJFOC-20050906231

PATIENT
  Sex: Female
  Weight: 128.82 kg

DRUGS (17)
  1. RISPERDAL [Suspect]
     Indication: DRUG USE FOR UNKNOWN INDICATION
  2. WARFARIN SODIUM [Concomitant]
     Dosage: 8 MG MON, TUE, WED., THURS AND FRI.  9 MG SAT. AND SUN.
  3. EFFEXOR [Concomitant]
  4. FLEXERIL [Concomitant]
  5. XANAX [Concomitant]
  6. TOPROL-XL [Concomitant]
  7. LASIX [Concomitant]
  8. FLORINEF [Concomitant]
  9. PROAMATINE [Concomitant]
  10. KLOR-CON [Concomitant]
  11. NEURONTIN [Concomitant]
  12. OXYCONTIN [Concomitant]
  13. CORTISONE ACETATE TAB [Concomitant]
     Dosage: 25 MG 1200, 1/2 TAB AT 2200
  14. HYDROCHLOROQUINE [Concomitant]
  15. ZYRTEC [Concomitant]
  16. PREVACID [Concomitant]
  17. SYNTHROID [Concomitant]
     Dosage: 0.25 MCG MON, WED, AND FRI.  0.50 MCG TUE, THURS, SAT, AND SUN.

REACTIONS (3)
  - DYSPNOEA [None]
  - FALL [None]
  - SYNCOPE [None]
